FAERS Safety Report 6904456-1 (Version None)
Quarter: 2010Q3

REPORT INFORMATION
  Report Type: 
  Country: None (occurrence: None)
  Receive Date: 20100804
  Receipt Date: 20090601
  Transmission Date: 20110219
  Serious: Yes (Other)
  Sender: FDA-Public Use
  Company Number: US-PFIZER INC-2008153300

PATIENT
  Sex: Female
  Weight: 80.726 kg

DRUGS (23)
  1. LYRICA [Suspect]
     Indication: FIBROMYALGIA
     Dosage: 50 MG, 3X/DAY
     Dates: start: 20060816, end: 20060823
  2. XANAX [Suspect]
     Indication: SLEEP DISORDER
     Dosage: UNK
  3. NEURONTIN [Suspect]
     Dosage: UNK
  4. ALL OTHER THERAPEUTIC PRODUCTS [Suspect]
     Indication: HORMONE REPLACEMENT THERAPY
     Dosage: UNK
  5. PERCOCET [Suspect]
     Indication: PAIN
     Dosage: UNK
  6. AMBIEN [Concomitant]
     Dosage: UNK
  7. REMERON [Concomitant]
     Dosage: UNK
  8. MIRAPEX [Concomitant]
  9. VITAMIN TAB [Concomitant]
     Dosage: UNK
  10. PRILOSEC [Concomitant]
     Dosage: UNK
  11. ZYRTEC [Concomitant]
     Dosage: EVERYDAY
  12. XYREM [Concomitant]
     Dosage: UNK
  13. SONATA [Concomitant]
     Dosage: UNK
  14. DARVOCET [Concomitant]
     Dosage: UNK
  15. COMPAZINE [Concomitant]
     Dosage: UNK
  16. RANITIDINE [Concomitant]
     Dosage: 150 MG, 2X/DAY
  17. COMBIPATCH [Concomitant]
     Dosage: UNK
  18. COLACE [Concomitant]
     Dosage: QD
  19. BENADRYL [Concomitant]
     Dosage: UNK
  20. ASCORBIC ACID [Concomitant]
     Dosage: DAILY
  21. COENZYME Q10 [Concomitant]
     Dosage: QD
  22. CALCIUM [Concomitant]
     Dosage: DAILY
  23. LIDOCAINE [Concomitant]
     Dosage: 5 %, AS NEEDED
     Route: 061

REACTIONS (27)
  - BODY HEIGHT DECREASED [None]
  - CLUMSINESS [None]
  - CONFUSIONAL STATE [None]
  - CONSTIPATION [None]
  - DIARRHOEA [None]
  - DISTURBANCE IN ATTENTION [None]
  - DIZZINESS [None]
  - DRUG INEFFECTIVE [None]
  - DRY MOUTH [None]
  - FALL [None]
  - FEELING ABNORMAL [None]
  - HEADACHE [None]
  - HEPATIC ENZYME INCREASED [None]
  - HYPOGLYCAEMIA [None]
  - INSOMNIA [None]
  - MALAISE [None]
  - MEMORY IMPAIRMENT [None]
  - MUSCLE TIGHTNESS [None]
  - NAUSEA [None]
  - OEDEMA PERIPHERAL [None]
  - PAIN IN EXTREMITY [None]
  - RASH [None]
  - THINKING ABNORMAL [None]
  - TREMOR [None]
  - URTICARIA [None]
  - VISION BLURRED [None]
  - WEIGHT INCREASED [None]
